FAERS Safety Report 21232954 (Version 1)
Quarter: 2022Q3

REPORT INFORMATION
  Report Type: Spontaneous
  Country: US (occurrence: US)
  Receive Date: 20220819
  Receipt Date: 20220819
  Transmission Date: 20221027
  Serious: Yes (Other)
  Sender: FDA-Public Use
  Company Number: US-AMGEN-USASP2022139405

PATIENT

DRUGS (1)
  1. OTEZLA [Suspect]
     Active Substance: APREMILAST
     Indication: Product used for unknown indication
     Dosage: UNK
     Route: 065

REACTIONS (8)
  - Suicidal ideation [Unknown]
  - Gastrointestinal disorder [Unknown]
  - Nutritional condition abnormal [Unknown]
  - Asthenia [Unknown]
  - Muscle spasms [Unknown]
  - Depression [Unknown]
  - Abdominal discomfort [Unknown]
  - Diarrhoea [Unknown]
